FAERS Safety Report 11529196 (Version 1)
Quarter: 2015Q3

REPORT INFORMATION
  Report Type: Spontaneous
  Country: US (occurrence: None)
  Receive Date: 20150918
  Receipt Date: 20150918
  Transmission Date: 20151125
  Serious: Yes (Hospitalization)
  Sender: FDA-Public Use
  Company Number: None

PATIENT
  Age: 67 Year
  Sex: Female
  Weight: 68.04 kg

DRUGS (13)
  1. VITAMIN D [Concomitant]
     Active Substance: CHOLECALCIFEROL
  2. MORPHINE [Concomitant]
     Active Substance: MORPHINE
  3. COREG [Concomitant]
     Active Substance: CARVEDILOL
  4. NORCO [Concomitant]
     Active Substance: ACETAMINOPHEN\HYDROCODONE BITARTRATE
  5. REQUIP [Concomitant]
     Active Substance: ROPINIROLE HYDROCHLORIDE
  6. LORAZEPAM. [Concomitant]
     Active Substance: LORAZEPAM
  7. PRIALT [Suspect]
     Active Substance: ZICONOTIDE ACETATE
     Indication: RESTLESS LEGS SYNDROME
     Dates: start: 20131119
  8. GABAPENTIN. [Concomitant]
     Active Substance: GABAPENTIN
  9. CLOPIDOGREL [Concomitant]
     Active Substance: CLOPIDOGREL BISULFATE
  10. LEVETIRACETAM. [Concomitant]
     Active Substance: LEVETIRACETAM
  11. FUROSEMIDE. [Concomitant]
     Active Substance: FUROSEMIDE
  12. OMEPRAZOLE. [Concomitant]
     Active Substance: OMEPRAZOLE
  13. HYDROXYZINE [Concomitant]
     Active Substance: HYDROXYZINE\HYDROXYZINE HYDROCHLORIDE

REACTIONS (25)
  - Speech disorder [None]
  - Muscle spasms [None]
  - Asthenia [None]
  - Constipation [None]
  - Visual impairment [None]
  - Depression [None]
  - Disturbance in attention [None]
  - Gait disturbance [None]
  - Myalgia [None]
  - Paranoia [None]
  - Abdominal pain upper [None]
  - Balance disorder [None]
  - Dyspnoea [None]
  - Oral pain [None]
  - Diarrhoea [None]
  - Memory impairment [None]
  - Hostility [None]
  - Disorientation [None]
  - Malaise [None]
  - Mental impairment [None]
  - Sleep disorder [None]
  - Somnolence [None]
  - Fatigue [None]
  - Dizziness [None]
  - Urinary retention [None]

NARRATIVE: CASE EVENT DATE: 20131127
